FAERS Safety Report 9351818 (Version 1)
Quarter: 2013Q2

REPORT INFORMATION
  Report Type: Spontaneous
  Country: DE (occurrence: None)
  Receive Date: 20130612
  Receipt Date: 20130612
  Transmission Date: 20140414
  Serious: Yes (Other)
  Sender: FDA-Public Use
  Company Number: 2013-228

PATIENT
  Age: 26 Year
  Sex: Male

DRUGS (5)
  1. CLOZAPINE [Suspect]
     Indication: SCHIZOPHRENIA, CATATONIC TYPE
     Route: 048
  2. PERAZINE [Suspect]
     Indication: AGITATION
     Route: 048
  3. ZUCLOPENTHIXOL (ZUCLOPENTHIXOL) [Concomitant]
  4. LORAZEPAM (LORAZEPAM) [Concomitant]
  5. PIRENZEPINE (PIRENZEPINE) [Concomitant]

REACTIONS (4)
  - Antipsychotic drug level increased [None]
  - Agitation [None]
  - Drug interaction [None]
  - White blood cell count increased [None]
